FAERS Safety Report 17661144 (Version 2)
Quarter: 2020Q2

REPORT INFORMATION
  Report Type: Spontaneous
  Country: US (occurrence: US)
  Receive Date: 20200413
  Receipt Date: 20200422
  Transmission Date: 20200713
  Serious: No
  Sender: FDA-Public Use
  Company Number: US-SA-2020SA018540

PATIENT
  Age: 33 Year
  Sex: Female

DRUGS (1)
  1. DUPIXENT [Suspect]
     Active Substance: DUPILUMAB
     Dosage: 300 MG, OTHER
     Route: 058
     Dates: start: 201912

REACTIONS (6)
  - Eye discharge [Unknown]
  - Impaired quality of life [Unknown]
  - Eye inflammation [Unknown]
  - Condition aggravated [Unknown]
  - Eye infection [Unknown]
  - Product dose omission [Unknown]
